FAERS Safety Report 13200257 (Version 2)
Quarter: 2017Q1

REPORT INFORMATION
  Report Type: Spontaneous
  Country: JP (occurrence: JP)
  Receive Date: 20170208
  Receipt Date: 20170220
  Transmission Date: 20170428
  Serious: Yes (Hospitalization)
  Sender: FDA-Public Use
  Company Number: JP-UCBSA-2017005132

PATIENT
  Age: 47 Year
  Sex: Female

DRUGS (4)
  1. E KEPPRA [Suspect]
     Active Substance: LEVETIRACETAM
     Indication: PRODUCT USED FOR UNKNOWN INDICATION
     Dosage: 500 MG DAILY DOSE
     Route: 048
     Dates: start: 20111028
  2. SODIUM VALPROATE [Suspect]
     Active Substance: VALPROATE SODIUM
     Indication: PRODUCT USED FOR UNKNOWN INDICATION
     Dosage: 200 MG, 5X/DAY
     Route: 048
  3. E KEPPRA [Suspect]
     Active Substance: LEVETIRACETAM
     Dosage: GRADUALLY INCREASED
  4. E KEPPRA [Suspect]
     Active Substance: LEVETIRACETAM
     Dosage: TWICE DAILY AT 1000 MG AND 1500 MG, 2X/DAY (BID)
     Route: 048

REACTIONS (1)
  - Partial seizures with secondary generalisation [Recovered/Resolved]

NARRATIVE: CASE EVENT DATE: 20170124
